FAERS Safety Report 5114906-1 (Version None)
Quarter: 2006Q3

REPORT INFORMATION
  Report Type: 
  Country: None (occurrence: None)
  Receive Date: 20060922
  Receipt Date: 20060907
  Transmission Date: 20061208
  Serious: Yes (Other)
  Sender: FDA-Public Use
  Company Number: 2006S1000090

PATIENT
  Age: 42 Year
  Sex: Female

DRUGS (8)
  1. CUBICIN [Suspect]
     Indication: FEBRILE NEUTROPENIA
     Dosage: 6 MG/KG;Q24H;IV
     Route: 042
     Dates: start: 20060428, end: 20060504
  2. CHEMOTHERAPY [Concomitant]
  3. CEFEPIME [Concomitant]
  4. BACTRIM [Concomitant]
  5. AMBISOME [Concomitant]
  6. FLUCONAZOLE [Concomitant]
  7. CASPOFUNGIN [Concomitant]
  8. VALTREX [Concomitant]

REACTIONS (1)
  - CARDIAC FAILURE [None]
